FAERS Safety Report 16797148 (Version 1)
Quarter: 2019Q3

REPORT INFORMATION
  Report Type: Report from Study
  Country: None (occurrence: US)
  Receive Date: 20190911
  Receipt Date: 20190911
  Transmission Date: 20191005
  Serious: Yes (Other)
  Sender: FDA-Public Use
  Company Number: US-ABBVIE-19K-163-2917821-00

PATIENT
  Sex: Male

DRUGS (2)
  1. HUMIRA [Suspect]
     Active Substance: ADALIMUMAB
     Dosage: CITRATE FREE
     Route: 058
  2. HUMIRA [Suspect]
     Active Substance: ADALIMUMAB
     Indication: ANKYLOSING SPONDYLITIS
     Dosage: CITRATE FREE
     Route: 058

REACTIONS (8)
  - Post procedural complication [Unknown]
  - Weight bearing difficulty [Unknown]
  - Therapeutic product effect incomplete [Unknown]
  - Joint instability [Unknown]
  - Arthralgia [Not Recovered/Not Resolved]
  - Sigmoidectomy [Unknown]
  - Joint stiffness [Not Recovered/Not Resolved]
  - Hernia [Unknown]
